FAERS Safety Report 6661785-7 (Version None)
Quarter: 2010Q1

REPORT INFORMATION
  Report Type: 
  Country: None (occurrence: None)
  Receive Date: 20100331
  Receipt Date: 20090622
  Transmission Date: 20100710
  Serious: Yes (Other)
  Sender: FDA-Public Use
  Company Number: US-BRISTOL-MYERS SQUIBB COMPANY-14675052

PATIENT
  Age: 5 Decade
  Sex: Male

DRUGS (1)
  1. ERBITUX [Suspect]
     Indication: OESOPHAGEAL CARCINOMA
     Dosage: TAKEN 1ST DOSE

REACTIONS (1)
  - ADVERSE DRUG REACTION [None]
